FAERS Safety Report 4526628-6 (Version None)
Quarter: 2004Q4

REPORT INFORMATION
  Report Type: 
  Country: None (occurrence: None)
  Receive Date: 20041213
  Receipt Date: 20041201
  Transmission Date: 20050328
  Serious: Yes (Death)
  Sender: FDA-Public Use
  Company Number: R301145-PAP-USA

PATIENT
  Age: 86 Year
  Sex: Female

DRUGS (7)
  1. ACIPHEX [Suspect]
     Dosage: 20 MG, ORAL
     Route: 048
  2. DIOVAN [Concomitant]
  3. PLAVIX [Concomitant]
  4. LEVOTHROID [Concomitant]
  5. PANCREASE (PANCRELIPASE) [Concomitant]
  6. LIPITOR [Concomitant]
  7. LEVOXYL [Concomitant]

REACTIONS (1)
  - COLITIS ISCHAEMIC [None]
